FAERS Safety Report 25681760 (Version 1)
Quarter: 2025Q3

REPORT INFORMATION
  Report Type: Spontaneous
  Country: RU (occurrence: RU)
  Receive Date: 20250814
  Receipt Date: 20250814
  Transmission Date: 20251020
  Serious: Yes (Other)
  Sender: PFIZER
  Company Number: RU-PFIZER INC-202500162177

PATIENT
  Sex: Female

DRUGS (2)
  1. PALBOCICLIB [Suspect]
     Active Substance: PALBOCICLIB
     Indication: Uterine cancer
     Dates: start: 20250522, end: 20250713
  2. ANASTROZOLE [Concomitant]
     Active Substance: ANASTROZOLE
     Indication: Uterine cancer

REACTIONS (4)
  - Hepatotoxicity [Recovered/Resolved]
  - Pyrexia [Recovered/Resolved]
  - Asthenia [Recovered/Resolved]
  - Off label use [Unknown]

NARRATIVE: CASE EVENT DATE: 20250522
